FAERS Safety Report 11906514 (Version 1)
Quarter: 2016Q1

REPORT INFORMATION
  Report Type: Spontaneous
  Country: US (occurrence: None)
  Receive Date: 20160108
  Receipt Date: 20160108
  Transmission Date: 20160526
  Serious: Yes (Disabling)
  Sender: FDA-Public Use
  Company Number: None

PATIENT
  Age: 57 Year
  Sex: Female
  Weight: 72.58 kg

DRUGS (7)
  1. SAVELLA [Concomitant]
     Active Substance: MILNACIPRAN HYDROCHLORIDE
  2. OCUVITE [Concomitant]
     Active Substance: VITAMINS
  3. CIPRO [Suspect]
     Active Substance: CIPROFLOXACIN HYDROCHLORIDE
     Indication: CYSTITIS
     Dosage: 2
     Route: 048
     Dates: start: 20151008, end: 20151012
  4. EVISTA [Concomitant]
     Active Substance: RALOXIFENE HYDROCHLORIDE
  5. CALCIUM [Concomitant]
     Active Substance: CALCIUM
  6. MULTIVITAMIN [Concomitant]
     Active Substance: VITAMINS
  7. CIPRO [Suspect]
     Active Substance: CIPROFLOXACIN HYDROCHLORIDE
     Indication: VAGINAL INFECTION
     Dosage: 2
     Route: 048
     Dates: start: 20151008, end: 20151012

REACTIONS (14)
  - Pelvic pain [None]
  - Muscle twitching [None]
  - Anxiety [None]
  - Depression [None]
  - Paraesthesia [None]
  - Tremor [None]
  - Tendon disorder [None]
  - Insomnia [None]
  - Discomfort [None]
  - Temperature regulation disorder [None]
  - Burning sensation [None]
  - Bacterial infection [None]
  - Bladder pain [None]
  - Urethral pain [None]

NARRATIVE: CASE EVENT DATE: 20151027
